FAERS Safety Report 12273308 (Version 3)
Quarter: 2016Q3

REPORT INFORMATION
  Report Type: Spontaneous
  Country: US (occurrence: US)
  Receive Date: 20160415
  Receipt Date: 20160713
  Transmission Date: 20161109
  Serious: Yes (Hospitalization)
  Sender: FDA-Public Use
  Company Number: US-ABBVIE-16P-163-1602941-00

PATIENT
  Age: 62 Year
  Sex: Male
  Weight: 77 kg

DRUGS (8)
  1. ABIRATERONE ACETATE [Suspect]
     Active Substance: ABIRATERONE ACETATE
     Indication: PROSTATE CANCER
     Route: 048
     Dates: start: 20151102, end: 20160322
  2. LUPRON DEPOT [Suspect]
     Active Substance: LEUPROLIDE ACETATE
     Indication: PROSTATE CANCER
     Route: 050
     Dates: start: 20151102, end: 20160125
  3. IBUPROFEN. [Suspect]
     Active Substance: IBUPROFEN
     Indication: PAIN
     Route: 065
     Dates: start: 20160314
  4. ASPIRIN. [Concomitant]
     Active Substance: ASPIRIN
     Indication: PRODUCT USED FOR UNKNOWN INDICATION
  5. PREDNISONE. [Suspect]
     Active Substance: PREDNISONE
     Indication: PROSTATE CANCER
     Route: 048
     Dates: start: 20151102, end: 20160322
  6. CHOLECALCIFEROL [Concomitant]
     Active Substance: CHOLECALCIFEROL
     Indication: PRODUCT USED FOR UNKNOWN INDICATION
  7. LISINOPRIL. [Concomitant]
     Active Substance: LISINOPRIL
     Indication: PRODUCT USED FOR UNKNOWN INDICATION
  8. ENZALUTAMIDE [Suspect]
     Active Substance: ENZALUTAMIDE
     Indication: PROSTATE CANCER
     Route: 048
     Dates: start: 20151102, end: 20160322

REACTIONS (9)
  - Chest pain [Recovered/Resolved]
  - Rash [Recovered/Resolved]
  - Traumatic haemothorax [Recovered/Resolved]
  - Haematoma [Recovering/Resolving]
  - Road traffic accident [Recovered/Resolved]
  - Skin abrasion [Recovered/Resolved]
  - Dyspnoea [Recovered/Resolved]
  - Rib fracture [Recovering/Resolving]
  - Pneumothorax [Recovered/Resolved]

NARRATIVE: CASE EVENT DATE: 20160311
